FAERS Safety Report 6086186-4 (Version None)
Quarter: 2009Q1

REPORT INFORMATION
  Report Type: 
  Country: None (occurrence: None)
  Receive Date: 20090220
  Receipt Date: 20090209
  Transmission Date: 20090719
  Serious: Yes (Hospitalization)
  Sender: FDA-Public Use
  Company Number: CA-PFIZER INC-2009168070

PATIENT

DRUGS (11)
  1. PREGABALIN [Suspect]
     Indication: DIABETIC NEUROPATHY
     Dosage: 150 MG, 2X/DAY
     Route: 048
     Dates: start: 20081126, end: 20090125
  2. LIPITOR [Concomitant]
     Dosage: UNK
     Dates: start: 20051006
  3. ACETYLSALICYLIC ACID [Concomitant]
     Dosage: UNK
     Dates: start: 20051006
  4. DIAMICRON [Concomitant]
     Dosage: UNK
     Dates: start: 20070219
  5. RAMIPRIL [Concomitant]
     Dosage: UNK
     Dates: start: 20050219
  6. FUROSEMIDE [Concomitant]
     Dosage: UNK
     Dates: start: 20081201
  7. AMITRIPTYLINE [Concomitant]
     Dosage: UNK
  8. ALLOPURINOL [Concomitant]
     Dosage: UNK
     Dates: start: 20090120
  9. INDOMETHACIN [Concomitant]
     Dosage: UNK
     Dates: start: 20090120, end: 20090125
  10. TYLENOL W/ CODEINE NO. 3 [Concomitant]
     Dosage: UNK
     Dates: start: 20090105
  11. PERCOCET [Concomitant]
     Dosage: UNK
     Dates: end: 20090105

REACTIONS (1)
  - LACUNAR INFARCTION [None]
